FAERS Safety Report 8882530 (Version 2)
Quarter: 2012Q4

REPORT INFORMATION
  Report Type: 
  Country: US (occurrence: US)
  Receive Date: 20121103
  Receipt Date: 20121109
  Transmission Date: 20130627
  Serious: Yes (Other)
  Sender: FDA-Public Use
  Company Number: US-US-EMD SERONO, INC.-7170278

PATIENT
  Sex: Female
  Weight: 136 kg

DRUGS (3)
  1. REBIF [Suspect]
     Indication: MULTIPLE SCLEROSIS
     Dates: start: 200608, end: 201205
  2. BIRTH CONTROL PILLS [Concomitant]
     Indication: PRODUCT USED FOR UNKNOWN INDICATION
     Dates: start: 1991, end: 1995
  3. BIRTH CONTROL PILLS [Concomitant]
     Dates: start: 2004, end: 2011

REACTIONS (1)
  - Breast cancer in situ [Recovered/Resolved]
